FAERS Safety Report 13582780 (Version 1)
Quarter: 2017Q2

REPORT INFORMATION
  Report Type: Spontaneous
  Country: US (occurrence: US)
  Receive Date: 20170525
  Receipt Date: 20170525
  Transmission Date: 20170830
  Serious: No
  Sender: FDA-Public Use
  Company Number: US-TARO-2016TAR00769

PATIENT
  Age: 92 Year
  Sex: Female
  Weight: 82.54 kg

DRUGS (7)
  1. UNSPECIFIED CREAM PRODUCT [Suspect]
     Active Substance: UNSPECIFIED INGREDIENT
     Indication: SKIN BURNING SENSATION
  2. METOPROLOL. [Concomitant]
     Active Substance: METOPROLOL
  3. NIFEDIPINE. [Concomitant]
     Active Substance: NIFEDIPINE
  4. HYDROCHLOROTHIAZIDE. [Concomitant]
     Active Substance: HYDROCHLOROTHIAZIDE
  5. CLOTRIMAZOLE VAGINAL CREAM USP 2% 3 DAY [Suspect]
     Active Substance: CLOTRIMAZOLE
     Indication: VULVOVAGINAL BURNING SENSATION
     Dosage: UNK, 1X/DAY
     Dates: start: 20160906, end: 20160913
  6. BABY ASPIRIN [Concomitant]
     Active Substance: ASPIRIN
  7. CLONIDINE. [Concomitant]
     Active Substance: CLONIDINE

REACTIONS (2)
  - Hypoaesthesia [Unknown]
  - Drug effect incomplete [Not Recovered/Not Resolved]

NARRATIVE: CASE EVENT DATE: 20160913
